FAERS Safety Report 20500645 (Version 5)
Quarter: 2022Q2

REPORT INFORMATION
  Report Type: Spontaneous
  Country: US (occurrence: US)
  Receive Date: 20220222
  Receipt Date: 20220524
  Transmission Date: 20220721
  Serious: Yes (Death, Hospitalization, Other)
  Sender: FDA-Public Use
  Company Number: US-SA-SAC20220217000304

PATIENT
  Age: 60 Year
  Sex: Male

DRUGS (2)
  1. LUMIZYME [Suspect]
     Active Substance: ALGLUCOSIDASE ALFA
     Indication: Glycogen storage disease type II
     Dosage: 2225 MG, QOW
     Route: 042
     Dates: start: 20140722
  2. LUMIZYME [Suspect]
     Active Substance: ALGLUCOSIDASE ALFA
     Dosage: 2225 MG, QOW
     Route: 042
     Dates: start: 20100910

REACTIONS (3)
  - Death [Fatal]
  - Decubitus ulcer [Unknown]
  - Surgery [Unknown]
